FAERS Safety Report 18834957 (Version 9)
Quarter: 2021Q2

REPORT INFORMATION
  Report Type: Report from Study
  Country: FR (occurrence: FR)
  Receive Date: 20210203
  Receipt Date: 20210614
  Transmission Date: 20210717
  Serious: Yes (Death, Hospitalization, Other)
  Sender: FDA-Public Use
  Company Number: NVSC2021FR016129

PATIENT
  Age: 59 Year
  Sex: Female
  Weight: 53 kg

DRUGS (15)
  1. DULOXETINE. [Concomitant]
     Active Substance: DULOXETINE
     Indication: DEPRESSION
     Dosage: 60 MG MORNING , 30 MG EVENING
     Route: 065
  2. CORTANCYL [Concomitant]
     Active Substance: PREDNISONE
     Dosage: 60 MG, QD (PER DAY)
     Route: 065
     Dates: start: 20210123
  3. CYMBALTA [Concomitant]
     Active Substance: DULOXETINE HYDROCHLORIDE
     Indication: DEPRESSION
     Dosage: 90 MG
     Route: 048
     Dates: start: 202012
  4. RISPERSAN [Concomitant]
     Indication: DEPRESSION
     Dosage: 1 MG
     Route: 048
  5. CORTANCYL [Concomitant]
     Active Substance: PREDNISONE
     Indication: HEADACHE
     Dosage: 10 MG
     Route: 048
     Dates: start: 20210112
  6. SERESTA [Concomitant]
     Active Substance: OXAZEPAM
     Indication: ANXIETY
     Dosage: 125 MG
     Route: 048
  7. LANSOPRAZOL [Concomitant]
     Active Substance: LANSOPRAZOLE
     Indication: PROPHYLAXIS
     Dosage: 30 MG, BID
     Route: 048
     Dates: start: 202101
  8. TRAMETINIB [Suspect]
     Active Substance: TRAMETINIB
     Indication: METASTATIC MALIGNANT MELANOMA
     Dosage: 2 MG, QD
     Route: 048
     Dates: start: 20201027
  9. PRIMPERAN [Concomitant]
     Active Substance: METOCLOPRAMIDE HYDROCHLORIDE
     Indication: PROPHYLAXIS OF NAUSEA AND VOMITING
     Dosage: 10 MG, TID
     Route: 048
     Dates: start: 202101
  10. CORTANCYL [Concomitant]
     Active Substance: PREDNISONE
     Dosage: 60 MG
     Route: 048
     Dates: start: 20210121
  11. LYSANXIA [Concomitant]
     Active Substance: PRAZEPAM
     Indication: ANXIETY
     Dosage: 10 MG, TID
     Route: 048
     Dates: start: 202102
  12. DABRAFENIB [Suspect]
     Active Substance: DABRAFENIB
     Indication: METASTATIC MALIGNANT MELANOMA
     Dosage: 150 MG, BID (X2/DAY)
     Route: 048
     Dates: start: 20201027
  13. GAVISCON [Concomitant]
     Active Substance: ALUMINUM HYDROXIDE\MAGNESIUM CARBONATE
     Indication: PROPHYLAXIS
     Dosage: 10 ML, TID
     Route: 048
     Dates: end: 20210405
  14. LORMETAZEPAM [Concomitant]
     Active Substance: LORMETAZEPAM
     Indication: INSOMNIA
     Dosage: 2 MG
     Route: 048
  15. LORMETAZEPAM [Concomitant]
     Active Substance: LORMETAZEPAM
     Dosage: 1 MG, QD
     Route: 048
     Dates: end: 20210405

REACTIONS (11)
  - Muscular weakness [Recovered/Resolved]
  - Vomiting [Recovered/Resolved]
  - Balance disorder [Unknown]
  - Aphasia [Fatal]
  - Dizziness [Recovered/Resolved]
  - Fall [Recovering/Resolving]
  - Dizziness [Recovering/Resolving]
  - Intracranial pressure increased [Unknown]
  - Confusional state [Fatal]
  - Malignant melanoma [Fatal]
  - Fall [Recovered/Resolved]

NARRATIVE: CASE EVENT DATE: 20210119
